FAERS Safety Report 4492396-X (Version None)
Quarter: 2004Q4

REPORT INFORMATION
  Report Type: 
  Country: None (occurrence: None)
  Receive Date: 20041101
  Receipt Date: 20041101
  Transmission Date: 20050328
  Serious: No
  Sender: FDA-Public Use
  Company Number: None

PATIENT
  Age: 60 Year
  Sex: Male
  Weight: 82.1011 kg

DRUGS (1)
  1. LIPITOR [Suspect]
     Dosage: 10 MG PO DAILY
     Route: 048

REACTIONS (2)
  - MYALGIA [None]
  - MYOGLOBIN BLOOD INCREASED [None]
